FAERS Safety Report 15886102 (Version 1)
Quarter: 2019Q1

REPORT INFORMATION
  Report Type: Spontaneous
  Country: DE (occurrence: DE)
  Receive Date: 20190129
  Receipt Date: 20190129
  Transmission Date: 20190417
  Serious: Yes (Hospitalization, Other)
  Sender: FDA-Public Use
  Company Number: PHHY2019DE018627

PATIENT
  Age: 62 Year
  Sex: Female

DRUGS (3)
  1. BISOHEXAL [Suspect]
     Active Substance: BISOPROLOL FUMARATE
     Indication: HYPERTENSION
     Dosage: 5 MG, QD (1-0-0)
     Route: 048
     Dates: start: 20181113
  2. TORASEMID HEXAL [Concomitant]
     Active Substance: TORSEMIDE
     Indication: HYPERTENSION
     Dosage: 10 MG, QD (1-0-0)
     Route: 048
     Dates: start: 20180420
  3. CANDESARTAN HEUMANN [Concomitant]
     Active Substance: CANDESARTAN CILEXETIL
     Indication: HYPERTENSION
     Dosage: 8 MG, UNK (1 DAY)
     Route: 048
     Dates: start: 201411

REACTIONS (5)
  - Chest discomfort [Unknown]
  - Headache [Unknown]
  - Product substitution issue [Unknown]
  - Hypertensive crisis [Recovered/Resolved]
  - Nausea [Unknown]

NARRATIVE: CASE EVENT DATE: 201811
